FAERS Safety Report 16013659 (Version 1)
Quarter: 2019Q1

REPORT INFORMATION
  Report Type: Spontaneous
  Country: FR (occurrence: FR)
  Receive Date: 20190227
  Receipt Date: 20190227
  Transmission Date: 20190418
  Serious: Yes (Other)
  Sender: FDA-Public Use
  Company Number: FR-009507513-1902FRA006731

PATIENT
  Age: 51 Year
  Sex: Female
  Weight: 78 kg

DRUGS (8)
  1. SERTRALINE HYDROCHLORIDE. [Concomitant]
     Active Substance: SERTRALINE HYDROCHLORIDE
     Dosage: UNK
  2. SOLUPRED [Concomitant]
     Dosage: UNK
  3. LAMICTAL [Concomitant]
     Active Substance: LAMOTRIGINE
     Dosage: UNK
  4. OMEPRAZOLE. [Concomitant]
     Active Substance: OMEPRAZOLE
     Dosage: UNK
  5. URBANYL [Concomitant]
     Active Substance: CLOBAZAM
     Dosage: UNK
  6. TEMODAL [Suspect]
     Active Substance: TEMOZOLOMIDE
     Indication: OLIGOASTROCYTOMA
     Dosage: 5-DAY CYCLES EVERY 28 DAYS
     Route: 048
     Dates: start: 20180219
  7. MIRTAZAPINE. [Concomitant]
     Active Substance: MIRTAZAPINE
     Dosage: UNK
  8. LEVOTHYROX [Concomitant]
     Active Substance: LEVOTHYROXINE
     Dosage: UNK

REACTIONS (2)
  - Optic neuritis [Not Recovered/Not Resolved]
  - Radiosensitisation therapy [Not Recovered/Not Resolved]

NARRATIVE: CASE EVENT DATE: 20181122
